FAERS Safety Report 15482206 (Version 1)
Quarter: 2018Q4

REPORT INFORMATION
  Report Type: Other
  Country: DK (occurrence: DK)
  Receive Date: 20181010
  Receipt Date: 20181010
  Transmission Date: 20190205
  Serious: Yes (Other)
  Sender: FDA-Public Use
  Company Number: DK-GLENMARK PHARMACEUTICALS-2018GMK037650

PATIENT

DRUGS (6)
  1. RIZATRIPTAN BENZOATE. [Suspect]
     Active Substance: RIZATRIPTAN BENZOATE
     Indication: HEADACHE
     Dosage: UNK
     Route: 065
  2. PLEGRIDY [Suspect]
     Active Substance: PEGINTERFERON BETA-1A
     Indication: DEMYELINATION
     Dosage: UNK
     Route: 065
     Dates: start: 20150422
  3. AVONEX [Suspect]
     Active Substance: INTERFERON BETA-1A
     Indication: DEMYELINATION
     Dosage: UNK
     Route: 065
     Dates: start: 20130926, end: 20150422
  4. AUBAGIO [Suspect]
     Active Substance: TERIFLUNOMIDE
     Indication: PRODUCT USED FOR UNKNOWN INDICATION
     Dosage: UNK
     Route: 065
  5. SILGARD [Suspect]
     Active Substance: HUMAN PAPILLOMAVIRUS QUADRIVALENT (TYPES 6, 11, 16, AND 18) VACCINE, RECOMBINANT
     Indication: HUMAN PAPILLOMA VIRUS IMMUNISATION
     Dosage: 1 DF, UNK
     Route: 065
     Dates: start: 20130508, end: 20131120
  6. ATACAND [Suspect]
     Active Substance: CANDESARTAN CILEXETIL
     Indication: HEADACHE
     Dosage: UNK
     Route: 065
     Dates: start: 201410

REACTIONS (13)
  - Tooth injury [Unknown]
  - Anxiety [Unknown]
  - Memory impairment [Unknown]
  - Arthralgia [Unknown]
  - Myalgia [Unknown]
  - Disability [Not Recovered/Not Resolved]
  - Asthenia [Unknown]
  - Fatigue [Unknown]
  - General physical health deterioration [Unknown]
  - Parasympathetic nerve injury [Unknown]
  - Migraine [Unknown]
  - Fibromyalgia [Unknown]
  - Dizziness [Unknown]

NARRATIVE: CASE EVENT DATE: 20141120
